FAERS Safety Report 26004355 (Version 1)
Quarter: 2025Q4

REPORT INFORMATION
  Report Type: Spontaneous
  Country: US (occurrence: US)
  Receive Date: 20251106
  Receipt Date: 20251106
  Transmission Date: 20260117
  Serious: Yes (Death, Other)
  Sender: SANOFI AVENTIS
  Company Number: US-SA-2025SA313154

PATIENT
  Age: 73 Year
  Sex: Male

DRUGS (11)
  1. DUPIXENT [Suspect]
     Active Substance: DUPILUMAB
     Indication: Dermatitis atopic
     Dosage: 300 MG, QOW
     Route: 058
     Dates: start: 202408, end: 20250717
  2. DORZOLAMIDE HYDROCHLORIDE [Concomitant]
     Active Substance: DORZOLAMIDE HYDROCHLORIDE
     Dosage: 2 %  DOSE EVERY
  3. BRIMONIDINE TARTRATE [Concomitant]
     Active Substance: BRIMONIDINE TARTRATE
     Dosage: 0.2 %  DOSE EVERY
  4. OMEPRAZOLE [Concomitant]
     Active Substance: OMEPRAZOLE
     Dosage: 20 MG  DOSE EVERY
  5. TIMOLOL MALEATE [Concomitant]
     Active Substance: TIMOLOL MALEATE
     Dosage: 0.5 %  DOSE EVERY
  6. LATANOPROST [Concomitant]
     Active Substance: LATANOPROST
     Dosage: 0.05 %  DOSE EVERY
  7. TADALAFIL [Concomitant]
     Active Substance: TADALAFIL
     Dosage: 20 MG  DOSE EVERY
  8. UPTRAVI [Concomitant]
     Active Substance: SELEXIPAG
     Dosage: 1600 UG  DOSE EVERY
  9. XYZAL [Concomitant]
     Active Substance: LEVOCETIRIZINE DIHYDROCHLORIDE
     Dosage: 5 MG  DOSE EVERY
  10. ACCRUFER [Concomitant]
     Active Substance: FERRIC MALTOL
     Dosage: 30 MG  DOSE EVERY
  11. OPSUMIT [Concomitant]
     Active Substance: MACITENTAN
     Dosage: 10 MG  DOSE EVERY

REACTIONS (3)
  - Death [Fatal]
  - Periorbital swelling [Recovered/Resolved]
  - Erythema [Recovered/Resolved]

NARRATIVE: CASE EVENT DATE: 20250101
